FAERS Safety Report 9662582 (Version 2)
Quarter: 2013Q4

REPORT INFORMATION
  Report Type: Spontaneous
  Country: US (occurrence: US)
  Receive Date: 20131031
  Receipt Date: 20131031
  Transmission Date: 20140711
  Serious: No
  Sender: FDA-Public Use
  Company Number: US-PURDUE-USA-2011-0066358

PATIENT
  Age: 60 Year
  Sex: Female
  Weight: 79.37 kg

DRUGS (3)
  1. OXYCONTIN (NDA 22-272) [Suspect]
     Indication: PAIN
     Dosage: 160 MG, TID
     Route: 048
     Dates: start: 20110201
  2. OXYCONTIN (NDA 22-272) [Suspect]
     Dosage: 40 MG, TID
     Route: 048
  3. BYSTOLIC [Concomitant]
     Indication: HYPERTENSION

REACTIONS (12)
  - Nasal congestion [Recovered/Resolved]
  - Muscle spasms [Not Recovered/Not Resolved]
  - Pain [Unknown]
  - Constipation [Recovered/Resolved]
  - Headache [Not Recovered/Not Resolved]
  - Inadequate analgesia [Recovered/Resolved]
  - Fatigue [Not Recovered/Not Resolved]
  - Disturbance in attention [Not Recovered/Not Resolved]
  - Dyspnoea [Not Recovered/Not Resolved]
  - Intentional drug misuse [Unknown]
  - Drug effect delayed [Unknown]
  - Depression [Unknown]
